FAERS Safety Report 23187727 (Version 1)
Quarter: 2023Q4

REPORT INFORMATION
  Report Type: Spontaneous
  Country: US (occurrence: US)
  Receive Date: 20231115
  Receipt Date: 20231115
  Transmission Date: 20240109
  Serious: No
  Sender: FDA-Public Use
  Company Number: US-NOVOPROD-1034890

PATIENT
  Age: 68 Year

DRUGS (1)
  1. NOVOLOG [Suspect]
     Active Substance: INSULIN ASPART
     Indication: Product used for unknown indication
     Dosage: SLIDING SCALE MAXIMUM 68UNITS /MEAL  TID
     Route: 058
     Dates: start: 202210

REACTIONS (5)
  - Illness [Unknown]
  - Injection site bruising [Unknown]
  - Blood glucose increased [Unknown]
  - Product storage error [Unknown]
  - Multiple use of single-use product [Unknown]

NARRATIVE: CASE EVENT DATE: 20230101
